FAERS Safety Report 8842049 (Version 1)
Quarter: 2012Q4

REPORT INFORMATION
  Report Type: 
  Country: FR (occurrence: FR)
  Receive Date: 20121016
  Receipt Date: 20121016
  Transmission Date: 20130627
  Serious: Yes (Other)
  Sender: FDA-Public Use
  Company Number: PHHY2012FR091023

PATIENT
  Age: 71 Year
  Sex: Male

DRUGS (7)
  1. LEPONEX [Suspect]
     Dosage: 1 DF, accidental single intake
     Route: 048
     Dates: start: 20120916
  2. TAHOR [Concomitant]
  3. OMEXEL [Concomitant]
  4. PERMIXON [Concomitant]
  5. SEVIKAR [Concomitant]
  6. ASPEGIC [Concomitant]
  7. FORLAX [Concomitant]
     Dosage: 4000 UKN, UNK

REACTIONS (3)
  - Somnolence [Recovered/Resolved]
  - Accidental exposure to product [Recovered/Resolved]
  - Medication error [Recovered/Resolved]
